FAERS Safety Report 5012952-X (Version None)
Quarter: 2006Q2

REPORT INFORMATION
  Report Type: 
  Country: None (occurrence: None)
  Receive Date: 20060525
  Receipt Date: 20060505
  Transmission Date: 20061013
  Serious: Yes (Life-Threatening, Hospitalization)
  Sender: FDA-Public Use
  Company Number: US200511000232

PATIENT
  Age: 67 Year
  Sex: Female
  Weight: 136.1 kg

DRUGS (4)
  1. HUMULIN R [Suspect]
     Indication: DIABETES MELLITUS NON-INSULIN-DEPENDENT
     Dosage: AS NEEDED
     Dates: start: 19900101
  2. HUMULIN N [Suspect]
     Indication: DIABETES MELLITUS NON-INSULIN-DEPENDENT
     Dates: end: 20050601
  3. BUMEX [Concomitant]
  4. LANTUS [Concomitant]

REACTIONS (4)
  - ARTHRALGIA [None]
  - KNEE ARTHROPLASTY [None]
  - OEDEMA PERIPHERAL [None]
  - RESPIRATORY ARREST [None]
